FAERS Safety Report 6062814-4 (Version None)
Quarter: 2009Q1

REPORT INFORMATION
  Report Type: 
  Country: None (occurrence: None)
  Receive Date: 20090129
  Receipt Date: 20090109
  Transmission Date: 20090719
  Serious: Yes (Death, Hospitalization, Other)
  Sender: FDA-Public Use
  Company Number: PHHY2008NO32219

PATIENT
  Age: 55 Year
  Sex: Male

DRUGS (19)
  1. NEORAL [Suspect]
     Indication: RENAL TRANSPLANT
     Dosage: 75 MG, BID, ORAL; INTRAVENOUS
     Route: 048
     Dates: start: 20070927, end: 20070928
  2. NEORAL [Suspect]
     Indication: RENAL TRANSPLANT
     Dosage: 75 MG, BID, ORAL; INTRAVENOUS
     Route: 048
     Dates: end: 20070928
  3. SIMVASTATIN [Suspect]
     Indication: HYPERCHOLESTEROLAEMIA
     Dosage: 80 MG IN THE MORNING, ORAL
     Route: 048
     Dates: start: 20070917, end: 20071006
  4. LESCOL [Concomitant]
  5. SOLU-CORTEF [Concomitant]
  6. DIURAL (FUROSEMIDE) [Concomitant]
  7. ZINACEF (CEFUROXINE SODIUM) [Concomitant]
  8. FRAGMIN [Concomitant]
  9. FLAGYL [Concomitant]
  10. ALBYL-E (ACETYLSALICYLIC ACID, MAGNESIUM OXIDE) [Concomitant]
  11. SODIUM BICARBONATE IN PLASTIC CONTAINER [Concomitant]
  12. METOPROLOL SUCCINATE [Concomitant]
  13. ARANESP [Concomitant]
  14. PREDNISOLONE [Concomitant]
  15. ALLOPURINOL [Concomitant]
  16. RAMIPRIL [Concomitant]
  17. ETALPHA (ALFACALCIDOL) [Concomitant]
  18. NYCOPLUS FERRO (FERROUS SULFATE) [Concomitant]
  19. TITRALAC (AMINOACETIC ACID, CALCIUM CARBONATE) [Concomitant]

REACTIONS (15)
  - ARTERIOSCLEROSIS [None]
  - CARDIAC ARREST [None]
  - CLOSTRIDIUM DIFFICILE COLITIS [None]
  - COLITIS ULCERATIVE [None]
  - DEHYDRATION [None]
  - DYSPHAGIA [None]
  - FUNGUS SEROLOGY TEST POSITIVE [None]
  - GASTRITIS HAEMORRHAGIC [None]
  - HYPERKALAEMIA [None]
  - INTERSTITIAL LUNG DISEASE [None]
  - MYOSITIS [None]
  - OEDEMA [None]
  - PSEUDOMEMBRANOUS COLITIS [None]
  - RENAL FAILURE ACUTE [None]
  - RHABDOMYOLYSIS [None]
